FAERS Safety Report 9393288 (Version 1)
Quarter: 2013Q3

REPORT INFORMATION
  Report Type: Spontaneous
  Country: GB (occurrence: GB)
  Receive Date: 20130710
  Receipt Date: 20130710
  Transmission Date: 20140515
  Serious: Yes (Other)
  Sender: FDA-Public Use
  Company Number: GB-MYLANLABS-2013S1014366

PATIENT
  Age: 74 Year
  Sex: Male

DRUGS (1)
  1. LOSARTAN [Suspect]
     Indication: HYPERTENSION

REACTIONS (3)
  - Abnormal behaviour [Unknown]
  - Syncope [Unknown]
  - Hypotension [Unknown]
